FAERS Safety Report 12272959 (Version 2)
Quarter: 2016Q2

REPORT INFORMATION
  Report Type: Spontaneous
  Country: US (occurrence: US)
  Receive Date: 20160415
  Receipt Date: 20160415
  Transmission Date: 20160815
  Serious: No
  Sender: FDA-Public Use
  Company Number: US-ROCHE-1078535

PATIENT
  Sex: Male

DRUGS (3)
  1. TELAPREVIR [Suspect]
     Active Substance: TELAPREVIR
     Indication: HEPATITIS C
     Route: 065
     Dates: start: 20120504
  2. PEGASYS [Suspect]
     Active Substance: PEGINTERFERON ALFA-2A
     Indication: HEPATITIS C
     Route: 065
     Dates: start: 20120504
  3. RIBAVIRIN. [Suspect]
     Active Substance: RIBAVIRIN
     Indication: HEPATITIS C
     Route: 065
     Dates: start: 20120504

REACTIONS (8)
  - Malaise [Recovered/Resolved]
  - Asthenia [Recovered/Resolved]
  - Irritability [Unknown]
  - Hot flush [Recovered/Resolved]
  - Anaemia [Unknown]
  - Influenza like illness [Unknown]
  - Injection site bruising [Unknown]
  - Decreased appetite [Recovered/Resolved]
